FAERS Safety Report 12348076 (Version 2)
Quarter: 2016Q3

REPORT INFORMATION
  Report Type: Spontaneous
  Country: RU (occurrence: RU)
  Receive Date: 20160509
  Receipt Date: 20160929
  Transmission Date: 20161109
  Serious: Yes (Hospitalization, Other)
  Sender: FDA-Public Use
  Company Number: RU-JNJFOC-20160503285

PATIENT
  Age: 46 Year
  Sex: Female
  Weight: 69.98 kg

DRUGS (13)
  1. MIRENA [Suspect]
     Active Substance: LEVONORGESTREL
     Indication: CONTRACEPTION
     Route: 015
     Dates: start: 2008, end: 2012
  2. MIRENA [Suspect]
     Active Substance: LEVONORGESTREL
     Indication: MENOMETRORRHAGIA
     Route: 015
     Dates: start: 20141121, end: 20160322
  3. MIRENA [Suspect]
     Active Substance: LEVONORGESTREL
     Indication: CONTRACEPTION
     Route: 015
  4. NORCOLUT [Concomitant]
     Indication: ADENOMYOSIS
     Route: 065
  5. MIRENA [Suspect]
     Active Substance: LEVONORGESTREL
     Indication: ADENOMYOSIS
     Route: 015
     Dates: start: 2008, end: 2012
  6. ETHINYLESTRADIOL W/LEVONORGESTREL [Suspect]
     Active Substance: ETHINYL ESTRADIOL\LEVONORGESTREL
     Indication: CONTRACEPTION
     Route: 048
     Dates: start: 201606, end: 201607
  7. XARELTO [Suspect]
     Active Substance: RIVAROXABAN
     Indication: ABNORMAL CLOTTING FACTOR
     Route: 048
  8. MIRENA [Suspect]
     Active Substance: LEVONORGESTREL
     Indication: MENOMETRORRHAGIA
     Route: 015
     Dates: start: 2008, end: 2012
  9. MIRENA [Suspect]
     Active Substance: LEVONORGESTREL
     Indication: ADENOMYOSIS
     Route: 015
     Dates: start: 20141121, end: 20160322
  10. JEANINE [Suspect]
     Active Substance: DIENOGEST\ETHINYL ESTRADIOL
     Indication: PRODUCT USED FOR UNKNOWN INDICATION
     Route: 048
  11. MIRENA [Suspect]
     Active Substance: LEVONORGESTREL
     Indication: MENOMETRORRHAGIA
     Route: 015
  12. MIRENA [Suspect]
     Active Substance: LEVONORGESTREL
     Indication: ADENOMYOSIS
     Route: 015
  13. MIRENA [Suspect]
     Active Substance: LEVONORGESTREL
     Indication: CONTRACEPTION
     Route: 015
     Dates: start: 20141121, end: 20160322

REACTIONS (14)
  - Transient ischaemic attack [Unknown]
  - Abortion missed [Recovered/Resolved]
  - Uterine enlargement [Unknown]
  - Product use issue [Unknown]
  - Drug ineffective [Unknown]
  - Pregnancy with contraceptive device [Recovered/Resolved]
  - Menometrorrhagia [Unknown]
  - Off label use [Unknown]
  - Loss of consciousness [Unknown]
  - Heart rate decreased [Unknown]
  - Product quality issue [Unknown]
  - Atrial fibrillation [Unknown]
  - Uterine polyp [Unknown]
  - Menorrhagia [Unknown]

NARRATIVE: CASE EVENT DATE: 201411
